FAERS Safety Report 21513397 (Version 3)
Quarter: 2022Q4

REPORT INFORMATION
  Report Type: Report from Study
  Country: FR (occurrence: FR)
  Receive Date: 20221027
  Receipt Date: 20221104
  Transmission Date: 20230113
  Serious: Yes (Other)
  Sender: FDA-Public Use
  Company Number: FR-NOVARTISPH-NVSC2022FR201309

PATIENT
  Sex: Male
  Weight: 75 kg

DRUGS (2)
  1. PLUVICTO [Suspect]
     Active Substance: LUTETIUM LU-177 VIPIVOTIDE TETRAXETAN
     Indication: Prostate cancer metastatic
     Dosage: 7274 MBQ ONCE
     Route: 065
     Dates: start: 20220720, end: 20220720
  2. PLUVICTO [Suspect]
     Active Substance: LUTETIUM LU-177 VIPIVOTIDE TETRAXETAN
     Dosage: 7355 MBQ ONCE
     Route: 065
     Dates: start: 20220919, end: 20220919

REACTIONS (2)
  - Transaminases increased [Unknown]
  - Amylase increased [Recovering/Resolving]
